FAERS Safety Report 8766127 (Version 3)
Quarter: 2012Q4

REPORT INFORMATION
  Report Type: 
  Country: DK (occurrence: DK)
  Receive Date: 20120904
  Receipt Date: 20121016
  Transmission Date: 20130627
  Serious: Yes (Other)
  Sender: FDA-Public Use
  Company Number: DK-009507513-1208DNK011732

PATIENT
  Age: 23 Year
  Sex: Female

DRUGS (1)
  1. NUVARING [Suspect]
     Dosage: UNK

REACTIONS (2)
  - Paralysis [Recovering/Resolving]
  - Cerebral thrombosis [Unknown]
